FAERS Safety Report 9684300 (Version 2)
Quarter: 2013Q4

REPORT INFORMATION
  Report Type: Spontaneous
  Country: BR (occurrence: BR)
  Receive Date: 20131112
  Receipt Date: 20131206
  Transmission Date: 20140711
  Serious: Yes (Life-Threatening, Hospitalization, Other)
  Sender: FDA-Public Use
  Company Number: BR-ASTRAZENECA-2013SE82858

PATIENT
  Age: 68 Year
  Sex: Male

DRUGS (6)
  1. BRILINTA [Suspect]
     Route: 048
     Dates: start: 201305
  2. BICALUTAMIDE [Suspect]
     Indication: PROSTATE CANCER
     Route: 048
     Dates: start: 2011
  3. SIMVASTATIN [Concomitant]
     Indication: BLOOD CHOLESTEROL INCREASED
  4. CARVEDILOL [Concomitant]
     Indication: CARDIAC DISORDER
  5. ASA [Concomitant]
     Indication: VEIN DISORDER
  6. MONOCORDIL [Concomitant]
     Indication: CHEST PAIN

REACTIONS (5)
  - Cardiac arrest [Recovered/Resolved]
  - Cardiac disorder [Recovered/Resolved]
  - Hypotension [Recovered/Resolved]
  - Asthenia [Not Recovered/Not Resolved]
  - Nausea [Not Recovered/Not Resolved]
